FAERS Safety Report 12675902 (Version 2)
Quarter: 2017Q2

REPORT INFORMATION
  Report Type: Spontaneous
  Country: US (occurrence: US)
  Receive Date: 20160823
  Receipt Date: 20170417
  Transmission Date: 20170830
  Serious: No
  Sender: FDA-Public Use
  Company Number: US-TEVA-677232USA

PATIENT
  Sex: Female

DRUGS (15)
  1. COPAXONE [Suspect]
     Active Substance: GLATIRAMER ACETATE
     Route: 058
     Dates: start: 20090930
  2. ZANAFLEX [Concomitant]
     Active Substance: TIZANIDINE HYDROCHLORIDE
  3. CELEXA [Concomitant]
     Active Substance: CITALOPRAM HYDROBROMIDE
  4. TOPAMAX [Concomitant]
     Active Substance: TOPIRAMATE
  5. LYRICA [Concomitant]
     Active Substance: PREGABALIN
  6. PROVIGIL [Concomitant]
     Active Substance: MODAFINIL
  7. WARFARIN [Concomitant]
     Active Substance: WARFARIN
  8. BUSPAR [Concomitant]
     Active Substance: BUSPIRONE HYDROCHLORIDE
  9. GABAPENTIN. [Concomitant]
     Active Substance: GABAPENTIN
  10. TIZANIDINE. [Concomitant]
     Active Substance: TIZANIDINE
  11. BACLOFEN. [Concomitant]
     Active Substance: BACLOFEN
  12. CYCLOBENZAPRINE. [Concomitant]
     Active Substance: CYCLOBENZAPRINE
  13. COPAXONE [Suspect]
     Active Substance: GLATIRAMER ACETATE
     Indication: MULTIPLE SCLEROSIS
     Route: 058
     Dates: start: 20151015
  14. NEXIUM [Concomitant]
     Active Substance: ESOMEPRAZOLE MAGNESIUM
  15. OXYBUTYNIN [Concomitant]
     Active Substance: OXYBUTYNIN

REACTIONS (3)
  - Drug dose omission [Unknown]
  - Fall [Recovered/Resolved]
  - Bladder disorder [Unknown]

NARRATIVE: CASE EVENT DATE: 2016
